FAERS Safety Report 6759757-7 (Version None)
Quarter: 2010Q2

REPORT INFORMATION
  Report Type: 
  Country: None (occurrence: None)
  Receive Date: 20100604
  Receipt Date: 20100525
  Transmission Date: 20101027
  Serious: Yes (Hospitalization)
  Sender: FDA-Public Use
  Company Number: 2010AL003121

PATIENT
  Age: 79 Year
  Sex: Female

DRUGS (16)
  1. IBUPROFEN [Suspect]
     Indication: PAIN
     Dosage: 400 MG; TID; PO
     Route: 048
     Dates: start: 20091224, end: 20100418
  2. ATORVASTATIN [Concomitant]
  3. VERAPAMIL [Concomitant]
  4. SENNA [Concomitant]
  5. DIGOXIN [Concomitant]
  6. FUROSEMIDE [Concomitant]
  7. WARFARIN [Concomitant]
  8. CITALOPRAM [Concomitant]
  9. ZOPLICONE [Concomitant]
  10. OXYCODONE HCL [Concomitant]
  11. CODEINE SULFATE [Concomitant]
  12. HALOPERIDOL [Concomitant]
  13. MAGNESIUM HYDROXIDE TAB [Concomitant]
  14. GLYCERYL TRINITRATE [Concomitant]
  15. NORMAL SALINE [Concomitant]
  16. TRIMETHOPRIM [Concomitant]

REACTIONS (3)
  - HAEMATEMESIS [None]
  - OESOPHAGEAL ULCER [None]
  - REFLUX OESOPHAGITIS [None]
